FAERS Safety Report 10300976 (Version 5)
Quarter: 2015Q3

REPORT INFORMATION
  Report Type: Spontaneous
  Country: US (occurrence: US)
  Receive Date: 20140714
  Receipt Date: 20150702
  Transmission Date: 20151125
  Serious: Yes (Hospitalization)
  Sender: FDA-Public Use
  Company Number: US-PFIZER INC-2014192957

PATIENT
  Age: 56 Year
  Sex: Male

DRUGS (1)
  1. XELJANZ [Suspect]
     Active Substance: TOFACITINIB CITRATE
     Indication: RHEUMATOID ARTHRITIS
     Dosage: 5 MG, 2X/DAY
     Dates: start: 201401

REACTIONS (6)
  - Fatigue [Unknown]
  - Condition aggravated [Unknown]
  - Arthropathy [Unknown]
  - Middle insomnia [Unknown]
  - Ligament injury [Unknown]
  - Cartilage injury [Unknown]

NARRATIVE: CASE EVENT DATE: 2014
